FAERS Safety Report 9409836 (Version 4)
Quarter: 2013Q3

REPORT INFORMATION
  Report Type: Spontaneous
  Country: IT (occurrence: IT)
  Receive Date: 20130719
  Receipt Date: 20130830
  Transmission Date: 20140515
  Serious: Yes (Death, Hospitalization, Other)
  Sender: FDA-Public Use
  Company Number: IT-PFIZER INC-2013209310

PATIENT
  Age: 88 Year
  Sex: Female

DRUGS (8)
  1. RAMIPRIL [Suspect]
     Indication: HYPERTENSION
     Dosage: 5 MG, DAILY
     Route: 048
     Dates: start: 20100101, end: 20130527
  2. SPIRONOLACTONE [Suspect]
     Dosage: 50 MG, DAILY
     Route: 048
     Dates: start: 20100101, end: 20130527
  3. CARDIRENE [Concomitant]
     Dosage: UNK
  4. TIKLID [Concomitant]
     Dosage: UNK
  5. FUROSEMIDE [Concomitant]
     Dosage: UNK
  6. OMEPRAZOLE [Concomitant]
     Dosage: UNK
  7. ALLOPURINOL [Concomitant]
     Dosage: UNK
  8. BISOPROLOL FUMARATE [Concomitant]
     Dosage: UNK

REACTIONS (7)
  - Cardiac arrest [Fatal]
  - Renal failure acute [Fatal]
  - Mesenteritis [Unknown]
  - Aortic stenosis [Unknown]
  - Myocardial ischaemia [Unknown]
  - Atrial fibrillation [Unknown]
  - Hypothyroidism [Unknown]
